FAERS Safety Report 19783144 (Version 3)
Quarter: 2021Q3

REPORT INFORMATION
  Report Type: Spontaneous
  Country: DE (occurrence: DE)
  Receive Date: 20210902
  Receipt Date: 20210925
  Transmission Date: 20211014
  Serious: Yes (Hospitalization, Other)
  Sender: FDA-Public Use
  Company Number: NVSC2021DE194890

PATIENT
  Sex: Male

DRUGS (11)
  1. SALBUTAMOL [Suspect]
     Active Substance: ALBUTEROL
     Indication: SUICIDE ATTEMPT
     Dosage: UNK
     Route: 065
     Dates: start: 20210814, end: 20210814
  2. FOSTER [Suspect]
     Active Substance: BECLOMETHASONE\FORMOTEROL
     Indication: SUICIDE ATTEMPT
     Dosage: UNK
     Route: 055
     Dates: start: 20210814, end: 20210814
  3. THEOPHYLLINE [Suspect]
     Active Substance: THEOPHYLLINE ANHYDROUS
     Indication: PRODUCT USED FOR UNKNOWN INDICATION
     Dosage: UNK
     Route: 048
     Dates: start: 20210814, end: 20210814
  4. THEOPHYLLINE [Suspect]
     Active Substance: THEOPHYLLINE ANHYDROUS
     Indication: SUICIDE ATTEMPT
  5. FOSTER [Suspect]
     Active Substance: BECLOMETHASONE\FORMOTEROL
     Indication: ASTHMA
     Dosage: 4 DF, QD
     Route: 055
  6. IBUPROFEN. [Suspect]
     Active Substance: IBUPROFEN
     Indication: SUICIDE ATTEMPT
     Dosage: 8000 MILLIGRAM, QD
     Route: 048
     Dates: start: 20210814, end: 20210814
  7. FOSTER [Suspect]
     Active Substance: BECLOMETHASONE\FORMOTEROL
     Indication: SUICIDAL IDEATION
  8. PANTOPRAZOLE [Suspect]
     Active Substance: PANTOPRAZOLE
     Indication: SUICIDE ATTEMPT
     Dosage: UNK
     Route: 048
     Dates: start: 20210814, end: 20210814
  9. EBASTINE [Suspect]
     Active Substance: EBASTINE
     Indication: ALLERGY TO ANIMAL
     Dosage: UNK
     Route: 065
     Dates: start: 20210814, end: 20210814
  10. SALBUTAMOL [Suspect]
     Active Substance: ALBUTEROL
     Indication: ASTHMA
     Dosage: UNK
     Route: 055
  11. EBASTINE [Suspect]
     Active Substance: EBASTINE
     Indication: SUICIDE ATTEMPT
     Dosage: UNK
     Route: 048

REACTIONS (14)
  - Somnolence [Recovering/Resolving]
  - Hyperglycaemia [Recovering/Resolving]
  - Body temperature decreased [Recovered/Resolved]
  - Blood pressure decreased [Recovering/Resolving]
  - Suicide attempt [Recovered/Resolved]
  - Infection [Recovered/Resolved]
  - Electrocardiogram ST segment elevation [Recovering/Resolving]
  - Drug abuse [Recovered/Resolved]
  - Blood glucose increased [Recovering/Resolving]
  - Hypokalaemia [Recovered/Resolved]
  - Chills [Recovering/Resolving]
  - Discoloured vomit [Recovered/Resolved]
  - Heart rate increased [Recovered/Resolved]
  - Toxicity to various agents [Recovered/Resolved]

NARRATIVE: CASE EVENT DATE: 20210814
